FAERS Safety Report 18205889 (Version 1)
Quarter: 2020Q3

REPORT INFORMATION
  Report Type: Spontaneous
  Country: US (occurrence: US)
  Receive Date: 20200828
  Receipt Date: 20200828
  Transmission Date: 20201103
  Serious: Yes (Hospitalization)
  Sender: FDA-Public Use
  Company Number: US-ROCHE-2665575

PATIENT
  Age: 61 Year
  Sex: Female

DRUGS (2)
  1. COTELLIC [Suspect]
     Active Substance: COBIMETINIB
     Indication: PRODUCT USED FOR UNKNOWN INDICATION
     Dosage: FREQUENCY: EVERY DAY X 21 DAY
     Route: 048
     Dates: start: 20200728
  2. ZELBORAF [Suspect]
     Active Substance: VEMURAFENIB
     Indication: MALIGNANT MELANOMA
     Dosage: ONGOING:YES STRENTH 240 MG
     Route: 048
     Dates: start: 20200728

REACTIONS (6)
  - Swelling [Unknown]
  - Rash [Unknown]
  - Pyrexia [Unknown]
  - Oropharyngeal blistering [Unknown]
  - Oral mucosal blistering [Unknown]
  - Diarrhoea [Not Recovered/Not Resolved]
